FAERS Safety Report 14800546 (Version 2)
Quarter: 2018Q2

REPORT INFORMATION
  Report Type: Spontaneous
  Country: GR (occurrence: GR)
  Receive Date: 20180424
  Receipt Date: 20180424
  Transmission Date: 20180711
  Serious: Yes (Hospitalization)
  Sender: FDA-Public Use
  Company Number: PHHY2017GR202522

PATIENT
  Age: 72 Year
  Sex: Male

DRUGS (11)
  1. LENALIDOMIDE [Suspect]
     Active Substance: LENALIDOMIDE
     Indication: PLASMA CELL MYELOMA
     Dosage: 10 MG, (DOSAGE FORM: UNSPECIFIED, ON DAY 1 AND 8 OF EACH CYCLE)
     Route: 048
  2. DEXAMETHASONE. [Suspect]
     Active Substance: DEXAMETHASONE
     Indication: PLASMA CELL MYELOMA
     Dosage: 40 MG, UNK(ON DAYS 1,2,4,5,8,11 AND 12 OF EACH CYCLE
     Route: 048
  3. FILGRASTIM [Concomitant]
     Active Substance: FILGRASTIM
     Indication: PRODUCT USED FOR UNKNOWN INDICATION
     Route: 065
  4. ZOLEDRONIC ACID [Concomitant]
     Active Substance: ZOLEDRONIC ACID
     Indication: PRODUCT USED FOR UNKNOWN INDICATION
     Route: 065
  5. HEPARIN [Concomitant]
     Active Substance: HEPARIN SODIUM
     Indication: THROMBOSIS PROPHYLAXIS
     Route: 065
  6. VELCADE [Suspect]
     Active Substance: BORTEZOMIB
     Indication: PLASMA CELL MYELOMA
     Dosage: 4 MG, QW (ON DAYS 1,4,8 AND 11 WITH 1 WEEK OFF OF A 21 DAY CYCLE)
     Route: 058
     Dates: start: 20161005
  7. RETACRIT [Concomitant]
     Active Substance: EPOETIN ALFA-EPBX
     Indication: PRODUCT USED FOR UNKNOWN INDICATION
     Route: 065
  8. DEXAMETHASONE. [Suspect]
     Active Substance: DEXAMETHASONE
     Dosage: 8 MG, UNK (DOSAGE FORM: UNSPECIFIED, ON DAYS 1, 8, 15 AND THEN ONE WEEK OFF)
     Route: 048
  9. CYCLOPHOSPHAMIDE. [Suspect]
     Active Substance: CYCLOPHOSPHAMIDE
     Indication: PLASMA CELL MYELOMA
     Dosage: 500 MG, UNK (ON DAY 1 AND 8 OF EACH CYCLE)
     Route: 042
  10. EPOETIN ALFA [Concomitant]
     Active Substance: ERYTHROPOIETIN
     Indication: PRODUCT USED FOR UNKNOWN INDICATION
     Route: 065
  11. DEXAMETHASONE. [Suspect]
     Active Substance: DEXAMETHASONE
     Dosage: 20 MG, UNK
     Route: 048

REACTIONS (7)
  - Respiratory tract infection viral [Recovered/Resolved]
  - Cough [Recovered/Resolved]
  - Platelet count decreased [Recovered/Resolved]
  - Atrial fibrillation [Recovered/Resolved]
  - Respiratory tract infection [Recovered/Resolved]
  - Productive cough [Recovered/Resolved]
  - Diarrhoea [Recovered/Resolved]

NARRATIVE: CASE EVENT DATE: 20161206
